FAERS Safety Report 8156498-9 (Version None)
Quarter: 2012Q1

REPORT INFORMATION
  Report Type: 
  Country: None (occurrence: None)
  Receive Date: 20120103
  Receipt Date: 20111025
  Transmission Date: 20120608
  Serious: No
  Sender: FDA-Public Use
  Company Number: AE-2011-002686

PATIENT
  Age: 52 Year
  Sex: Female
  Weight: 71.2147 kg

DRUGS (8)
  1. WELLBUTRIN [Concomitant]
  2. HYDROCODONE BITARTRATE [Concomitant]
  3. DIOVAN [Concomitant]
  4. HYDROXYZINE [Concomitant]
  5. RIBAVIRIN [Concomitant]
  6. PEGINTERFERON (PEGINTERFERON ALFA-2A) [Concomitant]
  7. INCIVEK [Suspect]
     Dosage: 2250 MG (750 MG, 1 IN 8 HR), ORAL
     Route: 048
     Dates: start: 20110810
  8. ETODOLAC [Concomitant]

REACTIONS (6)
  - ANORECTAL DISCOMFORT [None]
  - ECZEMA [None]
  - ANAEMIA [None]
  - ERYTHEMA [None]
  - WEIGHT DECREASED [None]
  - PRURITUS [None]
